FAERS Safety Report 14618547 (Version 3)
Quarter: 2018Q2

REPORT INFORMATION
  Report Type: Report from Study
  Country: KR (occurrence: KR)
  Receive Date: 20180309
  Receipt Date: 20180406
  Transmission Date: 20180711
  Serious: Yes (Other)
  Sender: FDA-Public Use
  Company Number: KR-EISAI MEDICAL RESEARCH-EC-2018-036901

PATIENT
  Sex: Male
  Weight: 85 kg

DRUGS (1)
  1. FYCOMPA [Suspect]
     Active Substance: PERAMPANEL
     Indication: SEIZURE
     Route: 048
     Dates: start: 20160810, end: 20160906

REACTIONS (1)
  - Chronic hepatitis B [Recovered/Resolved]

NARRATIVE: CASE EVENT DATE: 20160907
